FAERS Safety Report 25225003 (Version 1)
Quarter: 2025Q2

REPORT INFORMATION
  Report Type: Report from Study
  Country: VN (occurrence: VN)
  Receive Date: 20250422
  Receipt Date: 20250422
  Transmission Date: 20250716
  Serious: Yes (Other)
  Sender: ROCHE
  Company Number: VN-ROCHE-10000262344

PATIENT

DRUGS (3)
  1. BEVACIZUMAB [Suspect]
     Active Substance: BEVACIZUMAB
     Indication: Bile duct cancer
     Route: 065
  2. GEMCITABINE [Suspect]
     Active Substance: GEMCITABINE
     Indication: Bile duct cancer
     Route: 058
  3. OXALIPLATIN [Suspect]
     Active Substance: OXALIPLATIN
     Indication: Bile duct cancer
     Route: 058

REACTIONS (4)
  - Cerebral infarction [Unknown]
  - Hypertension [Unknown]
  - Off label use [Unknown]
  - Thrombocytopenia [Unknown]
